FAERS Safety Report 4273021-X (Version None)
Quarter: 2004Q1

REPORT INFORMATION
  Report Type: 
  Country: None (occurrence: None)
  Receive Date: 20040115
  Receipt Date: 20031217
  Transmission Date: 20041129
  Serious: Yes (Hospitalization)
  Sender: FDA-Public Use
  Company Number: 6956

PATIENT
  Age: 59 Year
  Sex: Male

DRUGS (2)
  1. AMIODARONE [Suspect]
     Indication: VENTRICULAR EXTRASYSTOLES
  2. PROPYLTHIOURACIL [Concomitant]

REACTIONS (2)
  - HYPERTHYROIDISM [None]
  - VENTRICULAR ARRHYTHMIA [None]
